FAERS Safety Report 10244117 (Version 1)
Quarter: 2014Q2

REPORT INFORMATION
  Report Type: Spontaneous
  Country: US (occurrence: None)
  Receive Date: 20140616
  Receipt Date: 20140616
  Transmission Date: 20141212
  Serious: Yes (Other)
  Sender: FDA-Public Use
  Company Number: None

PATIENT
  Age: 66 Year
  Sex: Female
  Weight: 65.77 kg

DRUGS (1)
  1. MIRVASO [Suspect]
     Indication: ROSACEA
     Dosage: RUB ON FACE AREA AS NEEDED APPLIED TO A SURFACE, USUALLY THE SKIN

REACTIONS (3)
  - Rosacea [None]
  - Condition aggravated [None]
  - Economic problem [None]
